FAERS Safety Report 17954455 (Version 2)
Quarter: 2021Q2

REPORT INFORMATION
  Report Type: Spontaneous
  Country: US (occurrence: US)
  Receive Date: 20200629
  Receipt Date: 20210525
  Transmission Date: 20210717
  Serious: No
  Sender: FDA-Public Use
  Company Number: US-JNJFOC-20200615467

PATIENT
  Age: 66 Year
  Sex: Male

DRUGS (15)
  1. PREDNISONE. [Concomitant]
     Active Substance: PREDNISONE
     Indication: PRODUCT USED FOR UNKNOWN INDICATION
     Route: 065
  2. ALLOPURINOL. [Concomitant]
     Active Substance: ALLOPURINOL
     Indication: PRODUCT USED FOR UNKNOWN INDICATION
     Route: 065
  3. LEVOXYL [Concomitant]
     Active Substance: LEVOTHYROXINE SODIUM
     Indication: PRODUCT USED FOR UNKNOWN INDICATION
     Route: 065
  4. L?ARGININE [Concomitant]
     Active Substance: ARGININE
     Indication: PRODUCT USED FOR UNKNOWN INDICATION
     Route: 065
  5. VENCLEXTA [Suspect]
     Active Substance: VENETOCLAX
     Route: 065
  6. ALPRAZOLAM. [Concomitant]
     Active Substance: ALPRAZOLAM
     Indication: PRODUCT USED FOR UNKNOWN INDICATION
     Route: 065
  7. TYLENOL [Suspect]
     Active Substance: ACETAMINOPHEN
     Indication: PRODUCT USED FOR UNKNOWN INDICATION
     Route: 048
  8. ZOFRAN [Concomitant]
     Active Substance: ONDANSETRON HYDROCHLORIDE
     Indication: PRODUCT USED FOR UNKNOWN INDICATION
     Route: 065
  9. PEPCID [ALUMINIUM HYDROXIDE GEL, DRIED;MAGNESIUM CARBONATE] [Suspect]
     Active Substance: ALUMINUM HYDROXIDE\MAGNESIUM CARBONATE
     Indication: PRODUCT USED FOR UNKNOWN INDICATION
     Route: 065
  10. GAZYVA [Concomitant]
     Active Substance: OBINUTUZUMAB
     Indication: PRODUCT USED FOR UNKNOWN INDICATION
  11. FLONASE [Concomitant]
     Active Substance: FLUTICASONE PROPIONATE
     Indication: PRODUCT USED FOR UNKNOWN INDICATION
     Route: 065
  12. XARELTO [Concomitant]
     Active Substance: RIVAROXABAN
     Indication: PRODUCT USED FOR UNKNOWN INDICATION
     Route: 065
  13. ASPIRIN                            /00002701/ [Suspect]
     Active Substance: ASPIRIN
     Indication: HEADACHE
     Route: 065
  14. VENCLEXTA [Suspect]
     Active Substance: VENETOCLAX
     Indication: CHRONIC LYMPHOCYTIC LEUKAEMIA
     Route: 048
     Dates: start: 20200601
  15. PRILOSEC [Suspect]
     Active Substance: OMEPRAZOLE MAGNESIUM
     Indication: PRODUCT USED FOR UNKNOWN INDICATION
     Route: 065

REACTIONS (13)
  - Muscle spasms [Unknown]
  - Gastrooesophageal reflux disease [Unknown]
  - Headache [Not Recovered/Not Resolved]
  - Nausea [Unknown]
  - Arthralgia [Not Recovered/Not Resolved]
  - Malaise [Recovering/Resolving]
  - Abdominal distension [Unknown]
  - Memory impairment [Unknown]
  - Rash macular [Unknown]
  - Food intolerance [Unknown]
  - Sinusitis [Unknown]
  - Dyspepsia [Not Recovered/Not Resolved]
  - Weight increased [Unknown]

NARRATIVE: CASE EVENT DATE: 2020
